FAERS Safety Report 8615667-1 (Version None)
Quarter: 2012Q3

REPORT INFORMATION
  Report Type: 
  Country: None (occurrence: None)
  Receive Date: 20120823
  Receipt Date: 20120814
  Transmission Date: 20120928
  Serious: Yes (Hospitalization)
  Sender: FDA-Public Use
  Company Number: US-JNJFOC-20120207493

PATIENT
  Sex: Female
  Weight: 45 kg

DRUGS (7)
  1. REMICADE [Suspect]
     Route: 042
     Dates: start: 20120207
  2. REMICADE [Suspect]
     Route: 042
     Dates: start: 20120118
  3. ANTIBIOTICS FOR IBD [Concomitant]
     Indication: INFLAMMATORY BOWEL DISEASE
  4. REMICADE [Suspect]
     Indication: CROHN'S DISEASE
     Route: 042
  5. REMICADE [Suspect]
     Route: 042
     Dates: start: 20120103
  6. IMURAN [Concomitant]
     Route: 048
  7. IMURAN [Concomitant]
     Route: 048

REACTIONS (3)
  - GASTROINTESTINAL FISTULA [None]
  - SMALL INTESTINAL OBSTRUCTION [None]
  - PANCREATITIS ACUTE [None]
